FAERS Safety Report 16967763 (Version 1)
Quarter: 2019Q4

REPORT INFORMATION
  Report Type: Spontaneous
  Country: FR (occurrence: FR)
  Receive Date: 20191028
  Receipt Date: 20191028
  Transmission Date: 20200122
  Serious: Yes (Hospitalization)
  Sender: FDA-Public Use
  Company Number: FR-MYLANLABS-2019M1091746

PATIENT
  Age: 86 Year
  Sex: Female

DRUGS (5)
  1. TEICOPLANINE MYLAN [Concomitant]
     Active Substance: TEICOPLANIN
     Dosage: UNK
  2. DOMPERIDONE ARROW                  /00498201/ [Concomitant]
     Active Substance: DOMPERIDONE
     Dosage: UNK
  3. OXYNORMORO [Suspect]
     Active Substance: OXYCODONE HYDROCHLORIDE
     Indication: PRODUCT USED FOR UNKNOWN INDICATION
     Dosage: UNK
     Dates: start: 20190308, end: 20190503
  4. LANSOPRAZOLE MYLAN 15 MG ORODISPERSIBLE TABLETS [Suspect]
     Active Substance: LANSOPRAZOLE
     Indication: PRODUCT USED FOR UNKNOWN INDICATION
     Dosage: 1 DOSAGE FORM, QD
     Route: 048
     Dates: start: 20190410, end: 20190430
  5. RIFADINE                           /00146901/ [Suspect]
     Active Substance: RIFAMPIN
     Indication: PRODUCT USED FOR UNKNOWN INDICATION
     Dosage: 3 DOSAGE FORM, QD
     Route: 048
     Dates: start: 20190423, end: 20190503

REACTIONS (4)
  - Hyponatraemia [Recovering/Resolving]
  - Urticaria [Recovered/Resolved]
  - Thrombocytopenia [Recovered/Resolved]
  - Cholestasis [Recovered/Resolved]

NARRATIVE: CASE EVENT DATE: 20190423
